FAERS Safety Report 23158707 (Version 1)
Quarter: 2023Q4

REPORT INFORMATION
  Report Type: Spontaneous
  Country: CN (occurrence: CN)
  Receive Date: 20231108
  Receipt Date: 20231108
  Transmission Date: 20240109
  Serious: Yes (Hospitalization)
  Sender: FDA-Public Use
  Company Number: CN-002147023-NVSC2023CN235960

PATIENT
  Age: 69 Year
  Sex: Male
  Weight: 55 kg

DRUGS (10)
  1. MEKINIST [Suspect]
     Active Substance: TRAMETINIB DIMETHYL SULFOXIDE
     Indication: Lung neoplasm malignant
     Dosage: 2 MG, QD
     Route: 048
     Dates: start: 20230628, end: 20230923
  2. MEKINIST [Suspect]
     Active Substance: TRAMETINIB DIMETHYL SULFOXIDE
     Indication: Metastases to central nervous system
  3. APREMILAST [Concomitant]
     Active Substance: APREMILAST
     Indication: Immune system disorder
     Route: 065
  4. APREMILAST [Concomitant]
     Active Substance: APREMILAST
     Indication: Blood pressure fluctuation
  5. APREMILAST [Concomitant]
     Active Substance: APREMILAST
     Indication: Inflammation
  6. APREMILAST [Concomitant]
     Active Substance: APREMILAST
     Indication: Anticoagulant therapy
  7. APREMILAST [Concomitant]
     Active Substance: APREMILAST
     Indication: Vascular occlusion
  8. APREMILAST [Concomitant]
     Active Substance: APREMILAST
     Indication: Diuretic therapy
  9. APREMILAST [Concomitant]
     Active Substance: APREMILAST
     Indication: Nutritional supplementation
  10. LINEZOLID [Concomitant]
     Active Substance: LINEZOLID
     Indication: Infection
     Dosage: 0.6 G, Q12H (IVGTT)
     Route: 065

REACTIONS (5)
  - Rash [Recovering/Resolving]
  - Rash erythematous [Recovering/Resolving]
  - Oedema peripheral [Recovering/Resolving]
  - Drug eruption [Not Recovered/Not Resolved]
  - Psoriasis [Not Recovered/Not Resolved]

NARRATIVE: CASE EVENT DATE: 20230923
